FAERS Safety Report 10072218 (Version 1)
Quarter: 2014Q2

REPORT INFORMATION
  Report Type: Spontaneous
  Country: US (occurrence: None)
  Receive Date: 20140410
  Receipt Date: 20140410
  Transmission Date: 20141212
  Serious: Yes (Life-Threatening)
  Sender: FDA-Public Use
  Company Number: None

PATIENT
  Age: 54 Year
  Sex: Female
  Weight: 108.86 kg

DRUGS (8)
  1. BREO ELLIPTA [Suspect]
     Indication: ASTHMA
     Dosage: 1 PUFF
     Route: 055
     Dates: start: 20140224, end: 20140409
  2. TUMERIC ROOT [Concomitant]
  3. VITAMIN D [Concomitant]
  4. IBUPROFEN [Concomitant]
  5. EXCEDRINE MIGRAINE [Concomitant]
  6. BAYER ASPIRIN [Concomitant]
  7. LAVELA [Concomitant]
  8. BIOTENE [Concomitant]

REACTIONS (1)
  - Asthma [None]
